FAERS Safety Report 10044698 (Version 3)
Quarter: 2014Q2

REPORT INFORMATION
  Report Type: Report from Study
  Country: CZ (occurrence: CZ)
  Receive Date: 20140328
  Receipt Date: 20140530
  Transmission Date: 20141212
  Serious: Yes (Other)
  Sender: FDA-Public Use
  Company Number: CZ-BAYER-2014-041865

PATIENT
  Sex: Female
  Weight: 57.14 kg

DRUGS (5)
  1. MIRENA [Suspect]
     Indication: CONTRACEPTION
     Dosage: 20 MCG/24HR, CONT
     Route: 015
     Dates: start: 20131003, end: 20140314
  2. INSULIN [Concomitant]
     Indication: DIABETES MELLITUS
     Dosage: UNK
     Dates: start: 2003
  3. LETROX [Concomitant]
     Dosage: 50 ?G, QD
     Route: 048
  4. SORTIS [Concomitant]
     Dosage: 10 MG, QOD
     Route: 048
  5. SYMBICORT [Concomitant]
     Dosage: 10 MG, QOD
     Route: 048

REACTIONS (4)
  - Vaginal haemorrhage [Recovering/Resolving]
  - Type 1 diabetes mellitus [Not Recovered/Not Resolved]
  - Blood glucose fluctuation [Not Recovered/Not Resolved]
  - Nausea [Not Recovered/Not Resolved]
